FAERS Safety Report 4851544-X (Version None)
Quarter: 2005Q4

REPORT INFORMATION
  Report Type: 
  Country: None (occurrence: None)
  Receive Date: 20051212
  Receipt Date: 20051205
  Transmission Date: 20060501
  Serious: Yes (Other)
  Sender: FDA-Public Use
  Company Number: CA-ROCHE-427302

PATIENT
  Age: 20 Year
  Sex: Male
  Weight: 72 kg

DRUGS (8)
  1. KETOROLAC TROMETHAMINE [Suspect]
     Indication: DRUG USE FOR UNKNOWN INDICATION
     Route: 042
  2. FENTANYL [Concomitant]
  3. PROPOFOL [Concomitant]
  4. FLUOTHANE [Concomitant]
  5. GLYCOPYRROLATE [Concomitant]
  6. NEOSTIGMINE [Concomitant]
  7. ROCURONIUM [Concomitant]
  8. PARIET [Concomitant]

REACTIONS (3)
  - HYPOXIA [None]
  - PNEUMONIA ASPIRATION [None]
  - PULMONARY OEDEMA [None]
